FAERS Safety Report 17050920 (Version 2)
Quarter: 2019Q4

REPORT INFORMATION
  Report Type: Spontaneous
  Country: US (occurrence: US)
  Receive Date: 20191120
  Receipt Date: 20191127
  Transmission Date: 20200122
  Serious: No
  Sender: FDA-Public Use
  Company Number: US-MTPC-MTDA2019-0078376

PATIENT

DRUGS (2)
  1. RADICAVA [Suspect]
     Active Substance: EDARAVONE
     Indication: AMYOTROPHIC LATERAL SCLEROSIS
     Dosage: 60 MG OVER 60 MIN, DAILY FOR 14 DAYS FOLLOWED BY A 14-DAY DRUG FREE PERIOD
     Route: 042
     Dates: start: 20180329, end: 20191113
  2. RADICAVA [Suspect]
     Active Substance: EDARAVONE
     Dosage: 60 MG OVER 60 MIN, DAILY FOR 10 DAYS OUT OF 14 DAY PERIODS FOLLOWED BY A 14-DAY DRUG FREE PERIODS
     Route: 042
     Dates: end: 20191113

REACTIONS (1)
  - Condition aggravated [Not Recovered/Not Resolved]
